FAERS Safety Report 9366189 (Version 2)
Quarter: 2013Q3

REPORT INFORMATION
  Report Type: Spontaneous
  Country: US (occurrence: US)
  Receive Date: 20130625
  Receipt Date: 20130815
  Transmission Date: 20140515
  Serious: Yes (Other)
  Sender: FDA-Public Use
  Company Number: US-ASTELLAS-2013US006427

PATIENT
  Sex: Male
  Weight: 77 kg

DRUGS (6)
  1. XTANDI [Suspect]
     Indication: PROSTATE CANCER
     Dosage: UNK
     Route: 048
     Dates: start: 201304, end: 201307
  2. XTANDI [Suspect]
     Indication: MALIGNANT NEOPLASM PROGRESSION
  3. ZYTIGA [Suspect]
     Indication: PRODUCT USED FOR UNKNOWN INDICATION
     Dosage: UNK
     Route: 065
  4. HYDROCODONE / IBUPROFEN [Concomitant]
     Indication: PRODUCT USED FOR UNKNOWN INDICATION
     Dosage: UNK
     Route: 065
  5. LUPRON [Concomitant]
     Indication: PRODUCT USED FOR UNKNOWN INDICATION
     Dosage: UNK
     Route: 065
  6. VITAMIN C                          /00008001/ [Concomitant]
     Indication: PRODUCT USED FOR UNKNOWN INDICATION
     Dosage: UNK
     Route: 065

REACTIONS (4)
  - Weight decreased [Unknown]
  - Nightmare [Unknown]
  - Fatigue [Unknown]
  - Prostatic specific antigen increased [Unknown]
